FAERS Safety Report 4967139-3 (Version None)
Quarter: 2006Q2

REPORT INFORMATION
  Report Type: 
  Country: None (occurrence: None)
  Receive Date: 20060404
  Receipt Date: 20060322
  Transmission Date: 20061013
  Serious: Yes (Other)
  Sender: FDA-Public Use
  Company Number: 2006US-01843

PATIENT
  Age: 82 Year
  Sex: Female

DRUGS (2)
  1. METFORMIN HCL [Suspect]
  2. FAMOTIDINE [Concomitant]

REACTIONS (4)
  - DIARRHOEA [None]
  - HAEMOGLOBIN DECREASED [None]
  - MALABSORPTION [None]
  - VITAMIN B12 DEFICIENCY [None]
